FAERS Safety Report 5267239-7 (Version None)
Quarter: 2007Q1

REPORT INFORMATION
  Report Type: 
  Country: None (occurrence: None)
  Receive Date: 20070316
  Receipt Date: 20070306
  Transmission Date: 20070707
  Serious: Yes (Hospitalization)
  Sender: FDA-Public Use
  Company Number: PHBS2007SE03990

PATIENT
  Age: 63 Year
  Sex: Male

DRUGS (4)
  1. ZOMETA [Suspect]
     Indication: MULTIPLE MYELOMA
     Route: 042
     Dates: start: 19990101
  2. PAMIDRONATE DISODIUM [Suspect]
     Indication: MULTIPLE MYELOMA
     Route: 042
  3. LENALIDOMIDE [Suspect]
  4. BETAPRED [Suspect]
     Route: 048

REACTIONS (1)
  - OSTEONECROSIS [None]
